FAERS Safety Report 5193653-4 (Version None)
Quarter: 2006Q4

REPORT INFORMATION
  Report Type: 
  Country: None (occurrence: None)
  Receive Date: 20061221
  Receipt Date: 20061212
  Transmission Date: 20070319
  Serious: Yes (Hospitalization, Other)
  Sender: FDA-Public Use
  Company Number: 8020733

PATIENT
  Sex: Male

DRUGS (1)
  1. KEPPRA [Suspect]
     Indication: CONVULSION

REACTIONS (3)
  - CEREBROVASCULAR ACCIDENT [None]
  - MALAISE [None]
  - WHITE BLOOD CELL COUNT DECREASED [None]
